FAERS Safety Report 20184601 (Version 1)
Quarter: 2021Q4

REPORT INFORMATION
  Report Type: Report from Study
  Country: ES (occurrence: ES)
  Receive Date: 20211214
  Receipt Date: 20211214
  Transmission Date: 20220303
  Serious: Yes (Death, Other)
  Sender: FDA-Public Use
  Company Number: ES-BRISTOL-MYERS SQUIBB COMPANY-BMS-2021-134513

PATIENT
  Age: 71 Year
  Sex: Female
  Weight: 80 kg

DRUGS (24)
  1. NIVOLUMAB [Suspect]
     Active Substance: NIVOLUMAB
     Indication: Renal cell carcinoma
     Dosage: 240 MG EVERY 15 DAYS
     Route: 065
     Dates: start: 201805
  2. SUNITINIB MALATE [Suspect]
     Active Substance: SUNITINIB MALATE
     Indication: Renal cell carcinoma
     Dosage: 50 MILLIGRAM, Q2WK
     Route: 048
     Dates: start: 201710, end: 201805
  3. LEVOTHYROXINE SODIUM [Concomitant]
     Active Substance: LEVOTHYROXINE SODIUM
     Indication: Hypothyroidism
     Dosage: UNK
     Route: 065
     Dates: start: 200701
  4. METAMIZOL [Concomitant]
     Active Substance: METAMIZOLE SODIUM
     Indication: Pain
     Dosage: UNK
     Route: 065
     Dates: start: 201709
  5. DEXKETOPROFEN\TRAMADOL [Concomitant]
     Active Substance: DEXKETOPROFEN\TRAMADOL
     Indication: Pain
     Dosage: UNK
     Route: 065
     Dates: start: 201709
  6. OMEPRAZOLE SODIUM [Concomitant]
     Active Substance: OMEPRAZOLE SODIUM
     Indication: Gastric disorder
     Dosage: UNK
     Route: 065
     Dates: start: 201709, end: 201711
  7. ENOXAPARIN SODIUM [Concomitant]
     Active Substance: ENOXAPARIN SODIUM
     Indication: Prophylaxis
     Dosage: UNK
     Route: 065
     Dates: start: 201711
  8. ACETAMINOPHEN [Concomitant]
     Active Substance: ACETAMINOPHEN
     Indication: Pain
     Dosage: UNK
     Route: 065
     Dates: start: 201801
  9. PANTOPRAZOLE [Concomitant]
     Active Substance: PANTOPRAZOLE
     Indication: Gastric disorder
     Dosage: UNK
     Route: 065
     Dates: start: 201711
  10. RISPERIDONE [Concomitant]
     Active Substance: RISPERIDONE
     Indication: Insomnia
     Dosage: UNK
     Route: 065
     Dates: start: 201712
  11. GABAPENTIN [Concomitant]
     Active Substance: GABAPENTIN
     Indication: Pain
     Dosage: UNK
     Route: 065
     Dates: start: 201712
  12. LACTULOSE [Concomitant]
     Active Substance: LACTULOSE
     Indication: Constipation prophylaxis
     Dosage: UNK
     Route: 065
     Dates: start: 201712
  13. LORMETAZEPAM [Concomitant]
     Active Substance: LORMETAZEPAM
     Indication: Insomnia
     Dosage: UNK
     Route: 065
     Dates: start: 201711
  14. CAPTOPRIL [Concomitant]
     Active Substance: CAPTOPRIL
     Indication: Hypertension
     Dosage: AS NEEDED
     Route: 065
     Dates: start: 201711
  15. GENTAMICIN [Concomitant]
     Active Substance: GENTAMICIN
     Indication: Urinary tract infection
     Dosage: UNK
     Route: 065
     Dates: start: 201801, end: 201802
  16. IMIPENEM [Concomitant]
     Active Substance: IMIPENEM
     Indication: Urinary tract infection
     Dosage: UNK
     Route: 065
     Dates: start: 201801, end: 201802
  17. LEVOTHYROXINE [Concomitant]
     Active Substance: LEVOTHYROXINE
     Indication: Hypothyroidism
     Dosage: UNK
     Route: 065
     Dates: start: 201803
  18. MIDAZOLAM [Concomitant]
     Active Substance: MIDAZOLAM
     Indication: Anxiety
     Dosage: AS NEEDED
     Route: 065
     Dates: start: 201803
  19. MIDAZOLAM [Concomitant]
     Active Substance: MIDAZOLAM
     Indication: Insomnia
  20. PRIMPERAN [Concomitant]
     Active Substance: METOCLOPRAMIDE HYDROCHLORIDE
     Indication: Vomiting
     Dosage: AS NEEDED
     Route: 065
     Dates: start: 201803
  21. MORPHINE [Concomitant]
     Active Substance: MORPHINE
     Indication: Pain
     Dosage: AS NEEDED
     Route: 065
     Dates: start: 201803
  22. HALOPERIDOL [Concomitant]
     Active Substance: HALOPERIDOL
     Indication: Agitation
     Dosage: AS NEEDED
     Route: 065
     Dates: start: 201803
  23. LINEZOLID [Concomitant]
     Active Substance: LINEZOLID
     Indication: Urinary tract infection
     Dosage: UNK
     Route: 065
     Dates: start: 201806, end: 201806
  24. SULFAMETHOXAZOLE\TRIMETHOPRIM [Concomitant]
     Active Substance: SULFAMETHOXAZOLE\TRIMETHOPRIM
     Indication: Urinary tract infection
     Dosage: UNK
     Route: 065
     Dates: start: 201806, end: 201807

REACTIONS (4)
  - Malignant neoplasm progression [Fatal]
  - Urosepsis [Unknown]
  - Pneumonia [Unknown]
  - Off label use [Unknown]

NARRATIVE: CASE EVENT DATE: 20180701
